FAERS Safety Report 5921515-0 (Version None)
Quarter: 2008Q4

REPORT INFORMATION
  Report Type: 
  Country: None (occurrence: None)
  Receive Date: 20081017
  Receipt Date: 20081010
  Transmission Date: 20090506
  Serious: Yes (Hospitalization)
  Sender: FDA-Public Use
  Company Number: SE-JNJFOC-20081002538

PATIENT
  Age: 87 Year
  Sex: Female

DRUGS (4)
  1. RISPERDAL [Suspect]
     Indication: HALLUCINATION
     Route: 048
  2. SELOKEN [Suspect]
     Indication: HYPERTENSION
     Route: 048
  3. MOVICOL [Concomitant]
     Route: 065
  4. IDEOS [Concomitant]
     Indication: SKIN LESION
     Route: 065

REACTIONS (2)
  - ORTHOSTATIC HYPOTENSION [None]
  - SUBARACHNOID HAEMORRHAGE [None]
